FAERS Safety Report 10258499 (Version 2)
Quarter: 2014Q2

REPORT INFORMATION
  Report Type: Spontaneous
  Country: GB (occurrence: GB)
  Receive Date: 20140625
  Receipt Date: 20140625
  Transmission Date: 20141212
  Serious: Yes (Other)
  Sender: FDA-Public Use
  Company Number: GB-ABBVIE-14P-167-1229456-00

PATIENT
  Age: 45 Year
  Sex: Male
  Weight: 73.2 kg

DRUGS (3)
  1. PROSTAP 3 [Suspect]
     Indication: TRANSGENDER HORMONAL THERAPY
     Route: 030
     Dates: start: 20130624, end: 20140325
  2. OESTROGEN [Concomitant]
     Indication: PRODUCT USED FOR UNKNOWN INDICATION
     Dosage: PATCH
  3. EVOREL [Concomitant]
     Indication: PRODUCT USED FOR UNKNOWN INDICATION
     Dates: start: 20130423

REACTIONS (3)
  - Injection site infection [Unknown]
  - Injection site abscess [Unknown]
  - Off label use [Unknown]
